FAERS Safety Report 5030972-6 (Version None)
Quarter: 2006Q2

REPORT INFORMATION
  Report Type: 
  Country: None (occurrence: None)
  Receive Date: 20060621
  Receipt Date: 20050831
  Transmission Date: 20061013
  Serious: No
  Sender: FDA-Public Use
  Company Number: US-GLAXOSMITHKLINE-A0572539A

PATIENT
  Age: 61 Year
  Sex: Female

DRUGS (5)
  1. FLOVENT [Suspect]
     Indication: CHRONIC OBSTRUCTIVE PULMONARY DISEASE
     Dosage: 2PUFF TWICE PER DAY
     Route: 055
     Dates: start: 20050501, end: 20050701
  2. FLOVENT [Suspect]
     Route: 055
  3. ALBUTEROL [Concomitant]
  4. ASPIRIN [Concomitant]
  5. OXYGEN [Concomitant]

REACTIONS (6)
  - COUGH [None]
  - ILL-DEFINED DISORDER [None]
  - MOBILITY DECREASED [None]
  - ORAL FUNGAL INFECTION [None]
  - PHARMACEUTICAL PRODUCT COMPLAINT [None]
  - SUFFOCATION FEELING [None]
